FAERS Safety Report 21462050 (Version 1)
Quarter: 2022Q4

REPORT INFORMATION
  Report Type: Spontaneous
  Country: US (occurrence: US)
  Receive Date: 20221015
  Receipt Date: 20221015
  Transmission Date: 20230112
  Serious: No
  Sender: FDA-Public Use
  Company Number: US-ABBVIE-4157564

PATIENT
  Sex: Male

DRUGS (2)
  1. LUPRON [Suspect]
     Active Substance: LEUPROLIDE ACETATE
     Indication: Product used for unknown indication
  2. Enzalutamide Tablet, 80 mg {Lot# EY0364; Exp.Dt. 31-AUG-2024} [Concomitant]
     Indication: Product used for unknown indication

REACTIONS (1)
  - Hot flush [Unknown]
